FAERS Safety Report 5952555-3 (Version None)
Quarter: 2008Q4

REPORT INFORMATION
  Report Type: 
  Country: None (occurrence: None)
  Receive Date: 20081113
  Receipt Date: 20081104
  Transmission Date: 20090506
  Serious: Yes (Hospitalization)
  Sender: FDA-Public Use
  Company Number: JP-MERCK-0811USA01161

PATIENT
  Age: 14 Year
  Sex: Male

DRUGS (3)
  1. PEPCID RPD [Suspect]
     Indication: GASTROENTERITIS
     Route: 048
  2. NAUZELIN [Concomitant]
     Route: 065
  3. MUCOSTA [Concomitant]
     Route: 065

REACTIONS (1)
  - LIVER DISORDER [None]
